FAERS Safety Report 4488306-1 (Version None)
Quarter: 2004Q4

REPORT INFORMATION
  Report Type: 
  Country: None (occurrence: None)
  Receive Date: 20041026
  Receipt Date: 20041007
  Transmission Date: 20050328
  Serious: Yes (Other)
  Sender: FDA-Public Use
  Company Number: DSA_25120_2004

PATIENT
  Age: 45 Year
  Sex: Female

DRUGS (8)
  1. LORAZEPAM [Suspect]
     Dosage: DF
  2. TETRAHYDROCANNABINOL [Concomitant]
  3. MEPROBAMATE [Concomitant]
  4. CARISOPRODOL [Concomitant]
  5. FENTANYL [Concomitant]
  6. OXYCODONE [Concomitant]
  7. ACETAMINOPHEN [Concomitant]
  8. CAFFEINE [Concomitant]

REACTIONS (17)
  - COORDINATION ABNORMAL [None]
  - DISORIENTATION [None]
  - DRUG SCREEN POSITIVE [None]
  - DRY MOUTH [None]
  - DYSPHONIA [None]
  - DYSSTASIA [None]
  - HEART RATE INCREASED [None]
  - HIPPUS [None]
  - HYPOTENSION [None]
  - IMPAIRED DRIVING ABILITY [None]
  - INAPPROPRIATE AFFECT [None]
  - NYSTAGMUS [None]
  - PARANOIA [None]
  - PUPILLARY REFLEX IMPAIRED [None]
  - RESTLESSNESS [None]
  - ROAD TRAFFIC ACCIDENT [None]
  - TREMOR [None]
